FAERS Safety Report 16817475 (Version 1)
Quarter: 2019Q3

REPORT INFORMATION
  Report Type: Spontaneous
  Country: US (occurrence: US)
  Receive Date: 20190917
  Receipt Date: 20190917
  Transmission Date: 20191005
  Serious: No
  Sender: FDA-Public Use
  Company Number: US-PFIZER INC-2019399077

PATIENT
  Age: 61 Year
  Sex: Female

DRUGS (1)
  1. GABAPENTIN. [Suspect]
     Active Substance: GABAPENTIN
     Indication: FIBROMYALGIA
     Dosage: UNK

REACTIONS (13)
  - Lethargy [Unknown]
  - Off label use [Unknown]
  - Product use in unapproved indication [Unknown]
  - Fatigue [Unknown]
  - Vocal cord disorder [Unknown]
  - Palpitations [Unknown]
  - Dry mouth [Unknown]
  - Gait inability [Unknown]
  - Fibromyalgia [Unknown]
  - Dry throat [Unknown]
  - Memory impairment [Unknown]
  - Condition aggravated [Unknown]
  - Depression [Unknown]
